FAERS Safety Report 19388969 (Version 1)
Quarter: 2021Q2

REPORT INFORMATION
  Report Type: Spontaneous
  Country: US (occurrence: US)
  Receive Date: 20210607
  Receipt Date: 20210607
  Transmission Date: 20210717
  Serious: Yes (Other)
  Sender: FDA-Public Use
  Company Number: None

PATIENT
  Age: 51 Year
  Sex: Female
  Weight: 51.3 kg

DRUGS (12)
  1. VITAMIN D3 [Concomitant]
     Active Substance: CHOLECALCIFEROL
  2. SYNTHROID [Concomitant]
     Active Substance: LEVOTHYROXINE SODIUM
  3. IRON [Concomitant]
     Active Substance: IRON
  4. MAGNESIUM OXIDE. [Concomitant]
     Active Substance: MAGNESIUM OXIDE
  5. IBUPROFEN. [Concomitant]
     Active Substance: IBUPROFEN
  6. VITAMIN C [Concomitant]
     Active Substance: ASCORBIC ACID
  7. LIQUID CALCIUM CARBONATE [Concomitant]
  8. TYLENOL [Concomitant]
     Active Substance: ACETAMINOPHEN
  9. MULTIPLE VITAMIN [Concomitant]
     Active Substance: VITAMINS
  10. ALLEGRA ALLERGY [Suspect]
     Active Substance: FEXOFENADINE HYDROCHLORIDE
     Indication: SEASONAL ALLERGY
     Dosage: ?          QUANTITY:1 CAPSULE(S);?
     Route: 048
     Dates: start: 20210420, end: 20210524
  11. VENTOLIN HFA [Concomitant]
     Active Substance: ALBUTEROL SULFATE
  12. ALPRAZOLAM. [Concomitant]
     Active Substance: ALPRAZOLAM

REACTIONS (31)
  - Anxiety [None]
  - Chills [None]
  - Throat tightness [None]
  - Asthenia [None]
  - Muscle twitching [None]
  - Tachyphrenia [None]
  - Sleep disorder [None]
  - Back pain [None]
  - Dysphagia [None]
  - Paranasal sinus inflammation [None]
  - Headache [None]
  - Bladder disorder [None]
  - Emotional disorder [None]
  - Insomnia [None]
  - Agitation [None]
  - Drug ineffective [None]
  - Nervousness [None]
  - Mental disorder [None]
  - Nausea [None]
  - Fatigue [None]
  - Dizziness [None]
  - Decreased appetite [None]
  - Amnesia [None]
  - Irritability [None]
  - Tremor [None]
  - Cognitive disorder [None]
  - Urinary tract disorder [None]
  - Nasopharyngitis [None]
  - Pain in extremity [None]
  - Oropharyngeal pain [None]
  - Ear pain [None]

NARRATIVE: CASE EVENT DATE: 20210523
